FAERS Safety Report 4864263-0 (Version None)
Quarter: 2005Q4

REPORT INFORMATION
  Report Type: 
  Country: None (occurrence: None)
  Receive Date: 20051222
  Receipt Date: 20051011
  Transmission Date: 20060501
  Serious: Yes (Death, Other)
  Sender: FDA-Public Use
  Company Number: 2005AP05361

PATIENT
  Age: 31132 Day
  Sex: Male
  Weight: 38 kg

DRUGS (4)
  1. ZOLADEX [Suspect]
     Indication: PROSTATE CANCER
     Route: 058
     Dates: start: 20050805, end: 20050805
  2. LEUPLIN [Concomitant]
     Indication: HORMONE THERAPY
     Dates: start: 19980729
  3. LEUPLIN [Concomitant]
     Dates: start: 20030214, end: 20050805
  4. PROSTAL [Concomitant]
     Indication: HORMONE THERAPY
     Dates: start: 19980729

REACTIONS (2)
  - CONVULSION [None]
  - NEOPLASM MALIGNANT [None]
